FAERS Safety Report 7982519-X (Version None)
Quarter: 2011Q4

REPORT INFORMATION
  Report Type: 
  Country: None (occurrence: None)
  Receive Date: 20111215
  Receipt Date: 20111214
  Transmission Date: 20120403
  Serious: No
  Sender: FDA-Public Use
  Company Number: PHEH2011US010944

PATIENT
  Sex: Female

DRUGS (6)
  1. TASIGNA [Suspect]
     Indication: CHRONIC MYELOID LEUKAEMIA
     Dosage: 300 MG, BID
     Route: 048
     Dates: start: 20111027
  2. TASIGNA [Suspect]
     Dosage: 300 MG, BID
     Route: 048
     Dates: start: 20111107
  3. M.V.I. [Concomitant]
     Dosage: 1 DF, DAILY
  4. FISH OIL [Concomitant]
  5. IBUPROFEN [Concomitant]
     Dosage: 600 MG, DAILY
  6. CLARITIN [Concomitant]
     Dosage: 10 MG, QOD

REACTIONS (4)
  - HOT FLUSH [None]
  - ALOPECIA [None]
  - PRURITUS [None]
  - HEADACHE [None]
